FAERS Safety Report 8553986-8 (Version None)
Quarter: 2012Q3

REPORT INFORMATION
  Report Type: 
  Country: None (occurrence: None)
  Receive Date: 20120731
  Receipt Date: 20120716
  Transmission Date: 20120928
  Serious: Yes (Other)
  Sender: FDA-Public Use
  Company Number: GB-WATSON-2012-13011

PATIENT
  Age: 72 Year
  Sex: Female

DRUGS (2)
  1. CLARITHROMYCIN [Suspect]
     Indication: PLEURAL EFFUSION
     Dosage: 500 MG, BID
     Route: 048
     Dates: start: 20110607
  2. FENTANYL CITRATE [Suspect]
     Indication: PAIN
     Dosage: 87 MCG/HR, Q72H
     Route: 062

REACTIONS (10)
  - FATIGUE [None]
  - DRUG INTERACTION [None]
  - VOMITING [None]
  - FEELING ABNORMAL [None]
  - LOSS OF CONSCIOUSNESS [None]
  - ENZYME INHIBITION [None]
  - DYSPNOEA [None]
  - RESPIRATORY FAILURE [None]
  - CARDIAC ARREST [None]
  - DYSARTHRIA [None]
